FAERS Safety Report 19254955 (Version 1)
Quarter: 2021Q2

REPORT INFORMATION
  Report Type: Spontaneous
  Country: US (occurrence: US)
  Receive Date: 20210513
  Receipt Date: 20210513
  Transmission Date: 20210717
  Serious: Yes (Death)
  Sender: FDA-Public Use
  Company Number: US-VERO BIOTECH-2110516

PATIENT
  Age: 2 Day
  Sex: Male

DRUGS (1)
  1. GENOSYL [Suspect]
     Active Substance: NITRIC OXIDE
     Indication: RESPIRATORY DISTRESS
     Route: 055
     Dates: start: 20210506, end: 20210507

REACTIONS (1)
  - Neonatal respiratory distress [Fatal]

NARRATIVE: CASE EVENT DATE: 20210507
